FAERS Safety Report 9134854 (Version 1)
Quarter: 2013Q1

REPORT INFORMATION
  Report Type: Spontaneous
  Country: US (occurrence: US)
  Receive Date: 20130304
  Receipt Date: 20130304
  Transmission Date: 20140127
  Serious: No
  Sender: FDA-Public Use
  Company Number: US-ENDO PHARMACEUTICALS INC.-ENDC20120004

PATIENT
  Sex: Male
  Weight: 65.83 kg

DRUGS (1)
  1. ENDOCET [Suspect]
     Indication: PAIN IN EXTREMITY
     Dosage: 60/3900 MG
     Route: 048
     Dates: start: 201012, end: 20120120

REACTIONS (4)
  - Nephrolithiasis [Not Recovered/Not Resolved]
  - Renal pain [Not Recovered/Not Resolved]
  - Restlessness [Not Recovered/Not Resolved]
  - Insomnia [Not Recovered/Not Resolved]
